FAERS Safety Report 9299203 (Version 1)
Quarter: 2013Q2

REPORT INFORMATION
  Report Type: Spontaneous
  Country: DE (occurrence: DE)
  Receive Date: 20130520
  Receipt Date: 20130520
  Transmission Date: 20140414
  Serious: Yes (Hospitalization)
  Sender: FDA-Public Use
  Company Number: DE-ELI_LILLY_AND_COMPANY-DE201305003147

PATIENT
  Age: 14 Year
  Sex: Female

DRUGS (2)
  1. STRATTERA [Suspect]
     Indication: ATTENTION DEFICIT/HYPERACTIVITY DISORDER
     Dosage: 25 MG, UNKNOWN
     Dates: start: 201212
  2. STRATTERA [Suspect]
     Dosage: 40 MG, UNKNOWN
     Dates: start: 201305

REACTIONS (1)
  - Syncope [Recovered/Resolved]
